FAERS Safety Report 7685432-0 (Version None)
Quarter: 2011Q3

REPORT INFORMATION
  Report Type: 
  Country: None (occurrence: None)
  Receive Date: 20110812
  Receipt Date: 20110812
  Transmission Date: 20111222
  Serious: Yes (Other)
  Sender: FDA-Public Use
  Company Number: None

PATIENT
  Sex: Male
  Weight: 30.2 kg

DRUGS (2)
  1. TOPAMAX [Suspect]
     Indication: MITOCHONDRIAL CYTOPATHY
     Dosage: THREE TID G-TUBE
     Dates: start: 20080101
  2. TOPAMAX [Suspect]
     Indication: EPILEPSY
     Dosage: THREE TID G-TUBE
     Dates: start: 20080101

REACTIONS (3)
  - PRODUCT SOLUBILITY ABNORMAL [None]
  - PRODUCT SUBSTITUTION ISSUE [None]
  - CRYSTAL URINE PRESENT [None]
